FAERS Safety Report 6720053-5 (Version None)
Quarter: 2010Q2

REPORT INFORMATION
  Report Type: 
  Country: None (occurrence: None)
  Receive Date: 20100507
  Receipt Date: 20071112
  Transmission Date: 20101027
  Serious: Yes (Hospitalization, Other)
  Sender: FDA-Public Use
  Company Number: 07-002286

PATIENT
  Age: 50 Year
  Sex: Female
  Weight: 87 kg

DRUGS (2)
  1. TACLONEX [Suspect]
     Indication: PSORIASIS
     Dosage: INFREQUENT USE, 1-2 TIMES A WEEK, CUTANEOUS
     Route: 003
     Dates: start: 20051220, end: 20071009
  2. DUACT (PSEUDOEPHEDRINE HYDROCHLORIDE, ACRIVASTINE) CAPSULES [Concomitant]

REACTIONS (4)
  - CATARACT [None]
  - OFF LABEL USE [None]
  - VISION BLURRED [None]
  - VISUAL ACUITY REDUCED [None]
